FAERS Safety Report 18660353 (Version 10)
Quarter: 2021Q1

REPORT INFORMATION
  Report Type: Report from Study
  Country: None (occurrence: IL)
  Receive Date: 20201223
  Receipt Date: 20210127
  Transmission Date: 20210419
  Serious: Yes (Death, Hospitalization)
  Sender: FDA-Public Use
  Company Number: IL-ABBVIE-20K-082-3695643-00

PATIENT
  Age: 69 Year
  Sex: Male

DRUGS (3)
  1. DUODOPA [Suspect]
     Active Substance: CARBIDOPA\LEVODOPA
     Indication: PARKINSON^S DISEASE
     Dosage: MORNING DOSE 8.0ML CONTINUOUS 2.7ML/HR AT NIGHT 1.2ML/HR EXTRA DOSE 1.0ML REMAIN AT 24 HRS
     Route: 050
     Dates: start: 20170328
  2. DUODOPA [Suspect]
     Active Substance: CARBIDOPA\LEVODOPA
     Dosage: MD 8.0 ML, CD 2.7 ML/HOUR, CD NIGHT DOSE 1.2 ML/HOUR, ED 1.0 ML, REMAINS AT 24HR
     Route: 050
     Dates: end: 20210124
  3. SINEMET [Concomitant]
     Active Substance: CARBIDOPA\LEVODOPA
     Indication: PRODUCT USED FOR UNKNOWN INDICATION

REACTIONS (37)
  - Pneumonia [Unknown]
  - Speech disorder [Unknown]
  - Fatigue [Unknown]
  - Insomnia [Unknown]
  - Death [Fatal]
  - Hypophagia [Unknown]
  - Nervousness [Unknown]
  - Malaise [Unknown]
  - Confusional state [Unknown]
  - Depression [Unknown]
  - Dysphagia [Unknown]
  - Oxygen saturation abnormal [Unknown]
  - Wound [Unknown]
  - Gait disturbance [Not Recovered/Not Resolved]
  - Dyskinesia [Unknown]
  - Incorrect route of product administration [Unknown]
  - Asthenia [Unknown]
  - Decubitus ulcer [Not Recovered/Not Resolved]
  - Nocturia [Unknown]
  - Klebsiella infection [Unknown]
  - Weight decreased [Unknown]
  - Pulmonary embolism [Unknown]
  - Movement disorder [Unknown]
  - Dysphonia [Unknown]
  - On and off phenomenon [Unknown]
  - Cognitive disorder [Unknown]
  - Musculoskeletal stiffness [Unknown]
  - Colitis [Unknown]
  - Depressed mood [Unknown]
  - Fall [Unknown]
  - Aspiration [Unknown]
  - General physical health deterioration [Unknown]
  - Feeling abnormal [Unknown]
  - Decreased appetite [Unknown]
  - Clostridium test positive [Unknown]
  - Apathy [Unknown]
  - Constipation [Unknown]

NARRATIVE: CASE EVENT DATE: 202101
